FAERS Safety Report 21473682 (Version 1)
Quarter: 2022Q4

REPORT INFORMATION
  Report Type: Spontaneous
  Country: PE (occurrence: PE)
  Receive Date: 20221018
  Receipt Date: 20221018
  Transmission Date: 20230112
  Serious: Yes (Death, Other)
  Sender: FDA-Public Use
  Company Number: PE-PFIZER INC-PV202200084364

PATIENT
  Age: 57 Year
  Sex: Female

DRUGS (1)
  1. INLYTA [Suspect]
     Active Substance: AXITINIB
     Dosage: UNK

REACTIONS (1)
  - Death [Fatal]
